FAERS Safety Report 16437812 (Version 2)
Quarter: 2019Q2

REPORT INFORMATION
  Report Type: Spontaneous
  Country: IL (occurrence: IL)
  Receive Date: 20190616
  Receipt Date: 20190627
  Transmission Date: 20190711
  Serious: Yes (Other)
  Sender: FDA-Public Use
  Company Number: PHHY2019IL136843

PATIENT
  Age: 47 Year
  Sex: Male

DRUGS (5)
  1. TASIGNA [Suspect]
     Active Substance: NILOTINIB
     Dosage: 150 MG, BID
     Route: 065
     Dates: start: 20190505, end: 20190513
  2. TASIGNA [Suspect]
     Active Substance: NILOTINIB
     Dosage: 150 MG, BID
     Route: 065
     Dates: end: 20190505
  3. URSOLIT [Concomitant]
     Indication: PRODUCT USED FOR UNKNOWN INDICATION
     Dosage: UNK
     Route: 065
  4. TASIGNA [Suspect]
     Active Substance: NILOTINIB
     Indication: CHRONIC MYELOID LEUKAEMIA
     Dosage: 300 MG, BID
     Route: 065
     Dates: start: 20190306
  5. VITAMIN B12 [Concomitant]
     Active Substance: CYANOCOBALAMIN
     Indication: PRODUCT USED FOR UNKNOWN INDICATION
     Dosage: UNK
     Route: 065

REACTIONS (2)
  - Hepatic function abnormal [Recovered/Resolved]
  - Toxicity to various agents [Recovered/Resolved]

NARRATIVE: CASE EVENT DATE: 20190313
